FAERS Safety Report 10388169 (Version 1)
Quarter: 2014Q3

REPORT INFORMATION
  Report Type: Spontaneous
  Country: US (occurrence: US)
  Receive Date: 20140815
  Receipt Date: 20140815
  Transmission Date: 20150326
  Serious: Yes (Other)
  Sender: FDA-Public Use
  Company Number: US-GLAXOSMITHKLINE-A1084343A

PATIENT
  Age: 76 Year
  Sex: Female

DRUGS (10)
  1. LOVASTATIN. [Concomitant]
     Active Substance: LOVASTATIN
  2. CYCLOBENZAPRINE [Concomitant]
     Active Substance: CYCLOBENZAPRINE
  3. IBUPROFEN. [Concomitant]
     Active Substance: IBUPROFEN
  4. HYDROCHLOROTHIAZIDE. [Concomitant]
     Active Substance: HYDROCHLOROTHIAZIDE
  5. ADVAIR HFA [Suspect]
     Active Substance: FLUTICASONE PROPIONATE\SALMETEROL XINAFOATE
     Indication: CHRONIC OBSTRUCTIVE PULMONARY DISEASE
     Dosage: 1PUFF TWICE PER DAY
     Route: 055
     Dates: start: 201308
  6. OMEPRAZOLE. [Concomitant]
     Active Substance: OMEPRAZOLE
  7. GABAPENTIN. [Concomitant]
     Active Substance: GABAPENTIN
  8. HYDROCODONE [Concomitant]
     Active Substance: HYDROCODONE
  9. SERTRALINE [Concomitant]
     Active Substance: SERTRALINE HYDROCHLORIDE
  10. AMLODIPINE [Concomitant]
     Active Substance: AMLODIPINE BESYLATE

REACTIONS (4)
  - Cataract [Not Recovered/Not Resolved]
  - Iris melanoma [Recovered/Resolved]
  - Intraocular lens implant [Unknown]
  - Visual impairment [Not Recovered/Not Resolved]

NARRATIVE: CASE EVENT DATE: 201406
